FAERS Safety Report 17307222 (Version 1)
Quarter: 2020Q1

REPORT INFORMATION
  Report Type: Report from Study
  Country: US (occurrence: US)
  Receive Date: 20200123
  Receipt Date: 20200123
  Transmission Date: 20200409
  Serious: No
  Sender: FDA-Public Use
  Company Number: NVSC2020US014578

PATIENT
  Sex: Female

DRUGS (1)
  1. ENTRESTO [Suspect]
     Active Substance: SACUBITRIL\VALSARTAN
     Indication: PRODUCT USED FOR UNKNOWN INDICATION
     Dosage: 200 MG QD (97MG SACUBITRIL /103MGVALSARTAN)
     Route: 048

REACTIONS (5)
  - Feeling hot [Unknown]
  - Neuralgia [Unknown]
  - Inappropriate schedule of product administration [Unknown]
  - Rash [Unknown]
  - Pain [Unknown]
